FAERS Safety Report 21226418 (Version 1)
Quarter: 2022Q3

REPORT INFORMATION
  Report Type: Spontaneous
  Country: US (occurrence: US)
  Receive Date: 20220818
  Receipt Date: 20220818
  Transmission Date: 20221027
  Serious: Yes (Life-Threatening, Other)
  Sender: FDA-Public Use
  Company Number: US-drreddys-LIT/USA/22/0153377

PATIENT
  Age: 62 Year
  Sex: Male

DRUGS (13)
  1. DOXORUBICIN HYDROCHLORIDE [Suspect]
     Active Substance: DOXORUBICIN HYDROCHLORIDE
     Indication: High grade B-cell lymphoma Burkitt-like lymphoma
     Dosage: INITIALLY SHOWED A RESPONSE
  2. DOXORUBICIN HYDROCHLORIDE [Suspect]
     Active Substance: DOXORUBICIN HYDROCHLORIDE
     Indication: Metastases to meninges
  3. CYCLOPHOSPHAMIDE [Suspect]
     Active Substance: CYCLOPHOSPHAMIDE
     Indication: High grade B-cell lymphoma Burkitt-like lymphoma
     Dosage: INITIALLY SHOWED A RESPONSE
  4. CYCLOPHOSPHAMIDE [Suspect]
     Active Substance: CYCLOPHOSPHAMIDE
     Indication: Metastases to meninges
  5. ETOPOSIDE [Suspect]
     Active Substance: ETOPOSIDE
     Indication: High grade B-cell lymphoma Burkitt-like lymphoma
     Dosage: INITIALLY SHOWED A RESPONSE
  6. ETOPOSIDE [Suspect]
     Active Substance: ETOPOSIDE
     Indication: Metastases to meninges
  7. PREDNISONE [Suspect]
     Active Substance: PREDNISONE
     Indication: High grade B-cell lymphoma Burkitt-like lymphoma
     Dosage: INITIALLY SHOWED A RESPONSE
  8. PREDNISONE [Suspect]
     Active Substance: PREDNISONE
     Indication: Metastases to meninges
  9. RITUXIMAB [Suspect]
     Active Substance: RITUXIMAB
     Indication: High grade B-cell lymphoma Burkitt-like lymphoma
     Dosage: INITIALLY SHOWED A RESPONSE
  10. RITUXIMAB [Suspect]
     Active Substance: RITUXIMAB
     Indication: Metastases to meninges
  11. VINCRISTINE [Suspect]
     Active Substance: VINCRISTINE
     Indication: High grade B-cell lymphoma Burkitt-like lymphoma
     Dosage: INITIALLY SHOWED A RESPONSE
  12. VINCRISTINE [Suspect]
     Active Substance: VINCRISTINE
     Indication: Metastases to meninges
  13. METHOTREXATE [Suspect]
     Active Substance: METHOTREXATE
     Indication: Metastases to meninges
     Dosage: HIGH DOSE

REACTIONS (6)
  - Drug ineffective [Unknown]
  - Epidural haemorrhage [Unknown]
  - Seizure [Unknown]
  - Metastases to meninges [Unknown]
  - Cauda equina syndrome [Unknown]
  - Disease progression [Unknown]
